FAERS Safety Report 5269040-7 (Version None)
Quarter: 2007Q1

REPORT INFORMATION
  Report Type: 
  Country: None (occurrence: None)
  Receive Date: 20070319
  Receipt Date: 20070315
  Transmission Date: 20070707
  Serious: Yes (Death, Life-Threatening)
  Sender: FDA-Public Use
  Company Number: 2007PK00643

PATIENT
  Age: 52 Year
  Sex: Female

DRUGS (10)
  1. SEROQUEL [Suspect]
     Dosage: 75 MG TO 250 MG PER DAY
     Route: 048
     Dates: start: 20061214, end: 20061217
  2. SEROQUEL [Suspect]
     Dosage: 75 MG TO 250 MG PER DAY
     Route: 048
     Dates: start: 20061218, end: 20061220
  3. CIPRALEX [Suspect]
     Route: 048
     Dates: start: 20061206, end: 20061220
  4. LORAZEPAM [Concomitant]
     Route: 048
     Dates: start: 20061203, end: 20061210
  5. LORAZEPAM [Concomitant]
     Route: 048
     Dates: start: 20061211, end: 20061211
  6. LORAZEPAM [Concomitant]
     Route: 048
     Dates: start: 20061212, end: 20061212
  7. LORAZEPAM [Concomitant]
     Route: 048
     Dates: start: 20061213, end: 20061215
  8. LORAZEPAM [Concomitant]
     Route: 048
     Dates: start: 20061216, end: 20061219
  9. LORAZEPAM [Concomitant]
     Route: 048
     Dates: start: 20061220, end: 20061220
  10. ZOLPIDEM TARTRATE [Concomitant]
     Route: 048
     Dates: start: 20061205, end: 20061220

REACTIONS (1)
  - COMPLETED SUICIDE [None]
